FAERS Safety Report 22073497 (Version 1)
Quarter: 2023Q1

REPORT INFORMATION
  Report Type: Spontaneous
  Country: US (occurrence: US)
  Receive Date: 20230308
  Receipt Date: 20230308
  Transmission Date: 20230417
  Serious: No
  Sender: FDA-Public Use
  Company Number: US-MACLEODS PHARMACEUTICALS US LTD-MAC2023040083

PATIENT

DRUGS (3)
  1. IBANDRONATE SODIUM [Suspect]
     Active Substance: IBANDRONATE SODIUM
     Indication: Product used for unknown indication
     Dosage: 1 DOSAGE FORM (MONTHLY)
     Route: 065
     Dates: start: 20230115
  2. IBANDRONATE SODIUM [Suspect]
     Active Substance: IBANDRONATE SODIUM
     Dosage: 1 DOSAGE FORM (MONTHLY)
     Route: 065
     Dates: start: 20230215
  3. IBANDRONATE SODIUM [Suspect]
     Active Substance: IBANDRONATE SODIUM
     Dosage: 1 DOSAGE FORM
     Route: 065
     Dates: start: 20230223

REACTIONS (2)
  - Extra dose administered [Unknown]
  - Accidental overdose [Unknown]
